FAERS Safety Report 7483762-9 (Version None)
Quarter: 2011Q2

REPORT INFORMATION
  Report Type: 
  Country: None (occurrence: None)
  Receive Date: 20110517
  Receipt Date: 20110506
  Transmission Date: 20111010
  Serious: Yes (Disabling)
  Sender: FDA-Public Use
  Company Number: PHFR2010GB05419

PATIENT
  Sex: Male

DRUGS (6)
  1. CLOZARIL [Suspect]
     Dosage: UNK MG,
     Route: 048
     Dates: start: 20040422
  2. SERTRALINE HYDROCHLORIDE [Concomitant]
     Indication: DEPRESSION
     Dosage: 50 MG, UNK
     Route: 048
     Dates: start: 20090101
  3. AMISULPRIDE [Concomitant]
     Indication: SCHIZOPHRENIA
     Dosage: 1000 MG, UNK
     Dates: start: 20040101
  4. CLOZARIL [Suspect]
     Indication: SCHIZOPHRENIA
     Dosage: 700 MG, QD
     Route: 048
     Dates: start: 19980801
  5. DENZAPINE [Concomitant]
     Dosage: UNK
  6. PROCYCLIDINE HYDROCHLORIDE 2MG TAB [Concomitant]
     Indication: DYSTONIA
     Dosage: 10 MG, UNK
     Route: 048
     Dates: start: 20070101

REACTIONS (4)
  - SKIN INFECTION [None]
  - NEUTROPHIL COUNT INCREASED [None]
  - WHITE BLOOD CELL COUNT INCREASED [None]
  - MONOCYTE COUNT INCREASED [None]
